FAERS Safety Report 4719255-9 (Version None)
Quarter: 2005Q3

REPORT INFORMATION
  Report Type: 
  Country: None (occurrence: None)
  Receive Date: 20050719
  Receipt Date: 20050719
  Transmission Date: 20060218
  Serious: Yes (Hospitalization)
  Sender: FDA-Public Use
  Company Number: None

PATIENT
  Age: 38 Year
  Sex: Female
  Weight: 45.3597 kg

DRUGS (4)
  1. BEVACIZUMAB [Suspect]
     Indication: GASTRIC CANCER
     Dosage: 227.25 MG
     Route: 042
     Dates: start: 20050411, end: 20050411
  2. IRINOTECAN [Suspect]
     Indication: GASTRIC CANCER
     Dosage: 171.60 MG INTRAVENOUS
     Route: 042
     Dates: start: 20050411, end: 20050411
  3. LEUCOVIN [Concomitant]
  4. FLUOROURACIL [Concomitant]

REACTIONS (2)
  - PERIRECTAL ABSCESS [None]
  - PYREXIA [None]
